FAERS Safety Report 13977941 (Version 2)
Quarter: 2017Q4

REPORT INFORMATION
  Report Type: Spontaneous
  Country: BE (occurrence: BE)
  Receive Date: 20170915
  Receipt Date: 20171106
  Transmission Date: 20180321
  Serious: Yes (Death, Other)
  Sender: FDA-Public Use
  Company Number: BE-ACTELION-A-CH2017-159129

PATIENT
  Age: 65 Year
  Sex: Male

DRUGS (3)
  1. UPTRAVI [Suspect]
     Active Substance: SELEXIPAG
     Indication: PULMONARY ARTERIAL HYPERTENSION
     Dosage: UNK
     Route: 048
     Dates: start: 20170629, end: 20170912
  2. OPSUMIT [Concomitant]
     Active Substance: MACITENTAN
  3. ADCIRCA [Concomitant]
     Active Substance: TADALAFIL

REACTIONS (5)
  - Renal failure [Fatal]
  - Pulmonary oedema [Unknown]
  - Pulmonary arterial hypertension [Fatal]
  - Condition aggravated [Fatal]
  - Pulmonary veno-occlusive disease [Unknown]
